FAERS Safety Report 5793295-3 (Version None)
Quarter: 2008Q2

REPORT INFORMATION
  Report Type: 
  Country: None (occurrence: None)
  Receive Date: 20080627
  Receipt Date: 20080620
  Transmission Date: 20081010
  Serious: Yes (Other)
  Sender: FDA-Public Use
  Company Number: CH-ASTRAZENECA-2008PK01341

PATIENT
  Age: 80 Year
  Sex: Male

DRUGS (4)
  1. SEROQUEL [Suspect]
     Route: 048
     Dates: start: 20070101, end: 20080415
  2. ROCEPHIN [Suspect]
     Route: 042
     Dates: start: 20080414, end: 20080418
  3. TEGRETOL [Suspect]
     Route: 048
     Dates: start: 20080323, end: 20080426
  4. CLEXANE [Concomitant]
     Route: 058
     Dates: start: 20080323, end: 20080506

REACTIONS (1)
  - DRUG RASH WITH EOSINOPHILIA AND SYSTEMIC SYMPTOMS [None]
